FAERS Safety Report 4814559-3 (Version None)
Quarter: 2005Q4

REPORT INFORMATION
  Report Type: 
  Country: None (occurrence: None)
  Receive Date: 20051028
  Receipt Date: 20041208
  Transmission Date: 20060501
  Serious: No
  Sender: FDA-Public Use
  Company Number: US-GLAXOSMITHKLINE-A0536611A

PATIENT
  Age: 80 Year
  Sex: Female

DRUGS (4)
  1. ADVAIR DISKUS 100/50 [Suspect]
     Indication: CHRONIC OBSTRUCTIVE PULMONARY DISEASE
     Dosage: 1PUFF TWICE PER DAY
     Route: 055
     Dates: end: 20041207
  2. SINGULAIR [Concomitant]
  3. COMBIVENT [Concomitant]
  4. SYNTHROID [Concomitant]

REACTIONS (4)
  - APHONIA [None]
  - COUGH [None]
  - DYSPHONIA [None]
  - ILL-DEFINED DISORDER [None]
